FAERS Safety Report 8848781 (Version 1)
Quarter: 2012Q4

REPORT INFORMATION
  Report Type: Spontaneous
  Country: US (occurrence: None)
  Receive Date: 20121017
  Receipt Date: 20121017
  Transmission Date: 20130627
  Serious: Yes (Life-Threatening, Hospitalization)
  Sender: FDA-Public Use
  Company Number: None

PATIENT
  Age: 62 Year
  Sex: Male
  Weight: 62 kg

DRUGS (1)
  1. DEXILANT [Suspect]
     Indication: GERD
     Route: 048
     Dates: start: 20121009, end: 20121010

REACTIONS (7)
  - Dyspnoea [None]
  - Respiratory rate increased [None]
  - Heart rate increased [None]
  - Hypotension [None]
  - Loss of consciousness [None]
  - Anaphylactic shock [None]
  - Sepsis [None]
